FAERS Safety Report 22324726 (Version 2)
Quarter: 2023Q2

REPORT INFORMATION
  Report Type: Report from Study
  Country: BE (occurrence: None)
  Receive Date: 20230516
  Receipt Date: 20230616
  Transmission Date: 20230722
  Serious: Yes (Other)
  Sender: FDA-Public Use
  Company Number: 2023A109803

PATIENT
  Sex: Female

DRUGS (1)
  1. IMFINZI [Suspect]
     Active Substance: DURVALUMAB

REACTIONS (1)
  - Neoplasm progression [Unknown]
